FAERS Safety Report 15833659 (Version 1)
Quarter: 2019Q1

REPORT INFORMATION
  Report Type: Report from Study
  Country: CA (occurrence: CA)
  Receive Date: 20190116
  Receipt Date: 20190116
  Transmission Date: 20190417
  Serious: Yes (Hospitalization)
  Sender: FDA-Public Use
  Company Number: CA-PFIZER INC-2019018767

PATIENT
  Age: 49 Year
  Sex: Female
  Weight: 70 kg

DRUGS (5)
  1. REMICADE [Suspect]
     Active Substance: INFLIXIMAB
     Indication: CROHN^S DISEASE
     Dosage: 400 MG, UNK (1 EVERY 8 WEEKS)
     Route: 042
  2. REMICADE [Suspect]
     Active Substance: INFLIXIMAB
     Indication: COLITIS ULCERATIVE
     Dosage: 400 MG, UNK (1 EVERY 8 WEEKS)
     Route: 042
  3. IMOVANE [Concomitant]
     Active Substance: ZOPICLONE
     Indication: SLEEP DISORDER
     Dosage: UNK
     Route: 065
  4. LOSEC [OMEPRAZOLE] [Concomitant]
     Indication: GASTRIC DISORDER
     Dosage: UNK
     Route: 065
  5. METHOTREXATE SODIUM. [Suspect]
     Active Substance: METHOTREXATE SODIUM
     Dosage: UNK
     Route: 065

REACTIONS (4)
  - Lichenoid keratosis [Recovered/Resolved]
  - Peripheral swelling [Recovered/Resolved]
  - Hepatic enzyme increased [Recovered/Resolved]
  - Arthralgia [Recovered/Resolved]
